FAERS Safety Report 17548663 (Version 1)
Quarter: 2020Q1

REPORT INFORMATION
  Report Type: Spontaneous
  Country: US (occurrence: US)
  Receive Date: 20200317
  Receipt Date: 20200317
  Transmission Date: 20200409
  Serious: No
  Sender: FDA-Public Use
  Company Number: US-ALLERGAN-1930291US

PATIENT
  Sex: Male

DRUGS (7)
  1. NORCO [Suspect]
     Active Substance: ACETAMINOPHEN\HYDROCODONE BITARTRATE
     Indication: PAIN
     Dosage: 1 DF
     Route: 048
     Dates: start: 20190723
  2. PROTONIX [Concomitant]
     Active Substance: PANTOPRAZOLE SODIUM
     Indication: GASTROOESOPHAGEAL REFLUX DISEASE
     Dosage: UNK
     Route: 065
  3. UNSPEICFED MUSCLE RELAXERS [Concomitant]
     Dosage: UNK
     Route: 065
  4. NORCO [Suspect]
     Active Substance: ACETAMINOPHEN\HYDROCODONE BITARTRATE
     Indication: NERVE INJURY
     Dosage: ACTUAL: 2 TABLETS IN MORNING AND 2 TABLETS IN EVENING
     Route: 048
     Dates: start: 20190722
  5. UNSPECIFED MEDICINE FOR CROHN^S [Concomitant]
     Indication: CROHN^S DISEASE
     Dosage: UNK
     Route: 065
  6. EPIDURAL [Concomitant]
     Indication: PAIN
     Dosage: UNK
     Route: 065
  7. GABAPENTIN. [Concomitant]
     Active Substance: GABAPENTIN
     Dosage: UNK
     Route: 065

REACTIONS (2)
  - Off label use [Unknown]
  - Pruritus [Recovered/Resolved]

NARRATIVE: CASE EVENT DATE: 20190722
